FAERS Safety Report 5759653-8 (Version None)
Quarter: 2008Q2

REPORT INFORMATION
  Report Type: 
  Country: None (occurrence: None)
  Receive Date: 20080605
  Receipt Date: 20080527
  Transmission Date: 20081010
  Serious: Yes (Hospitalization)
  Sender: FDA-Public Use
  Company Number: US-ROCHE-566648

PATIENT
  Age: 67 Year
  Sex: Female

DRUGS (3)
  1. BONIVA [Suspect]
     Indication: OSTEOPOROSIS
     Route: 048
     Dates: start: 20061201, end: 20071201
  2. ALTACE [Concomitant]
  3. ULTRAM [Concomitant]

REACTIONS (1)
  - PULMONARY THROMBOSIS [None]
